FAERS Safety Report 7796224-6 (Version None)
Quarter: 2011Q4

REPORT INFORMATION
  Report Type: 
  Country: None (occurrence: None)
  Receive Date: 20111004
  Receipt Date: 20110929
  Transmission Date: 20120403
  Serious: Yes (Hospitalization)
  Sender: FDA-Public Use
  Company Number: DE-ABBOTT-11P-062-0859288-00

PATIENT
  Sex: Female

DRUGS (2)
  1. HUMIRA [Suspect]
     Indication: PSORIATIC ARTHROPATHY
     Dosage: LONGER THAN EVERY OTHER WEEK
     Route: 058
     Dates: start: 20071201, end: 20110101
  2. HUMIRA [Suspect]
     Dosage: LONGER THAN EVERY OTHER WEEK
     Route: 058
     Dates: start: 20110101

REACTIONS (3)
  - VOMITING [None]
  - DECREASED APPETITE [None]
  - PSORIATIC ARTHROPATHY [None]
